FAERS Safety Report 4599989-X (Version None)
Quarter: 2005Q1

REPORT INFORMATION
  Report Type: 
  Country: None (occurrence: None)
  Receive Date: 20050303
  Receipt Date: 20050214
  Transmission Date: 20050727
  Serious: Yes (Hospitalization)
  Sender: FDA-Public Use
  Company Number: USA041182956

PATIENT
  Age: 67 Year
  Sex: Female

DRUGS (8)
  1. FORTEO [Suspect]
     Indication: OSTEOPOROSIS
     Dosage: 20 UG DAY
     Dates: start: 20020101
  2. LEXAPRO [Concomitant]
  3. KLONOPIN [Concomitant]
  4. ZOCOR (SIMVASTATIN RATIOPHARM) [Concomitant]
  5. DEPAKOTE [Concomitant]
  6. FAMVIR (PENCICLOVIR) [Concomitant]
  7. SYNTHROID [Concomitant]
  8. CALCIUM CARBONATE [Concomitant]

REACTIONS (11)
  - BACK INJURY [None]
  - BENIGN NEOPLASM OF THYROID GLAND [None]
  - CONCUSSION [None]
  - FALL [None]
  - FATIGUE [None]
  - HYPERPARATHYROIDISM [None]
  - INJURY [None]
  - NECK INJURY [None]
  - RESPIRATORY ARREST [None]
  - SEXUAL ASSAULT VICTIM [None]
  - VICTIM OF CRIME [None]
